FAERS Safety Report 8848622 (Version 1)
Quarter: 2012Q4

REPORT INFORMATION
  Report Type: Spontaneous
  Country: RS (occurrence: None)
  Receive Date: 20121015
  Receipt Date: 20121015
  Transmission Date: 20130627
  Serious: Yes (Other)
  Sender: FDA-Public Use
  Company Number: 2012000220

PATIENT
  Age: 62 Year
  Sex: Male

DRUGS (3)
  1. ACEON (PERINDOPRIL ERBUMINE) TABLET [Suspect]
     Indication: HYPERTENSION ARTERIAL
     Route: 048
     Dates: start: 2010, end: 20120928
  2. NEBILET [Concomitant]
  3. SORTIS [Concomitant]

REACTIONS (1)
  - Gynaecomastia [None]
